FAERS Safety Report 17405309 (Version 1)
Quarter: 2020Q1

REPORT INFORMATION
  Report Type: Spontaneous
  Country: ES (occurrence: ES)
  Receive Date: 20200212
  Receipt Date: 20200212
  Transmission Date: 20200409
  Serious: Yes (Other)
  Sender: FDA-Public Use
  Company Number: ES-TEVA-2020-ES-1184395

PATIENT
  Age: 63 Year
  Sex: Male

DRUGS (2)
  1. ATORVASTATINA 40 MG 28 COMPRIMIDOS [Suspect]
     Active Substance: ATORVASTATIN
     Indication: DYSLIPIDAEMIA
     Dosage: 40 MILLIGRAM DAILY; 0-0-0-1
     Route: 048
     Dates: start: 20191029, end: 20200122
  2. OPENVAS 10 MG COMPRIMIDOS RECUBIERTOS , 28 COMPRIMIDOS [Suspect]
     Active Substance: OLMESARTAN MEDOXOMIL
     Dosage: 10 MILLIGRAM DAILY; 1-0-0-0
     Route: 048
     Dates: start: 20190709

REACTIONS (1)
  - Gamma-glutamyltransferase increased [Unknown]

NARRATIVE: CASE EVENT DATE: 20200122
